FAERS Safety Report 19286205 (Version 1)
Quarter: 2021Q2

REPORT INFORMATION
  Report Type: Spontaneous
  Country: US (occurrence: US)
  Receive Date: 20210521
  Receipt Date: 20210521
  Transmission Date: 20210717
  Serious: No
  Sender: FDA-Public Use
  Company Number: US-GILEAD-2021-0530553

PATIENT
  Sex: Female

DRUGS (9)
  1. VRAYLAR [Concomitant]
     Active Substance: CARIPRAZINE
  2. BUPRENORPHINE. [Concomitant]
     Active Substance: BUPRENORPHINE
  3. KLONOPIN [Concomitant]
     Active Substance: CLONAZEPAM
  4. METHOCARBAMOL. [Concomitant]
     Active Substance: METHOCARBAMOL
  5. GABAPENTIN. [Concomitant]
     Active Substance: GABAPENTIN
  6. RESTORIL [Concomitant]
     Active Substance: TEMAZEPAM
  7. INDERAL [Concomitant]
     Active Substance: PROPRANOLOL HYDROCHLORIDE
  8. EPCLUSA [Suspect]
     Active Substance: SOFOSBUVIR\VELPATASVIR
     Indication: CHRONIC HEPATITIS C
     Dosage: 1 DOSAGE FORM, QD
     Route: 048
     Dates: start: 20210122
  9. PROPRANOLOL HYDROCHLORIDE. [Concomitant]
     Active Substance: PROPRANOLOL HYDROCHLORIDE

REACTIONS (2)
  - Nausea [Unknown]
  - Therapeutic response unexpected [Unknown]
